FAERS Safety Report 13867486 (Version 1)
Quarter: 2017Q3

REPORT INFORMATION
  Report Type: Spontaneous
  Country: None (occurrence: US)
  Receive Date: 20170814
  Receipt Date: 20170814
  Transmission Date: 20171127
  Serious: No
  Sender: FDA-Public Use
  Company Number: US-GALEN SPECIALTY PHARMA US LLC-AE-2017-0332

PATIENT
  Age: 47 Year
  Sex: Female

DRUGS (1)
  1. SYNERA [Suspect]
     Active Substance: LIDOCAINE\TETRACAINE
     Indication: BACK PAIN
     Dosage: PATIENT USES SYNERA DAILY, 12 HOURS ON AND 12 HOURS OFF
     Route: 061
     Dates: start: 201605, end: 20170515

REACTIONS (8)
  - Application site pruritus [Unknown]
  - Application site exfoliation [None]
  - Application site pain [None]
  - No reaction on previous exposure to drug [None]
  - Application site erythema [None]
  - Product use in unapproved indication [None]
  - Application site reaction [None]
  - Intentional product use issue [None]

NARRATIVE: CASE EVENT DATE: 20170515
